FAERS Safety Report 7390931-5 (Version None)
Quarter: 2011Q2

REPORT INFORMATION
  Report Type: 
  Country: None (occurrence: None)
  Receive Date: 20110404
  Receipt Date: 20110321
  Transmission Date: 20111010
  Serious: Yes (Other)
  Sender: FDA-Public Use
  Company Number: US-CELGENEUS-163-21880-10123159

PATIENT
  Sex: Female

DRUGS (15)
  1. REVLIMID [Suspect]
     Dosage: 5 MILLIGRAM
     Route: 048
     Dates: start: 20100701
  2. DEXAMETHASONE [Concomitant]
     Dosage: 4 MILLIGRAM
     Route: 065
  3. OMEPRAZOLE [Concomitant]
     Dosage: 40 MILLIGRAM
     Route: 065
  4. IMODIUM MULTI-SYMPTOM RELIEF [Concomitant]
     Dosage: 2 MILLIGRAM
     Route: 065
  5. SIMVASTATIN [Concomitant]
     Route: 065
  6. CLARITHROMYCIN [Concomitant]
     Dosage: 250 MILLIGRAM
     Route: 065
  7. ENSURE PLUS [Concomitant]
     Route: 065
  8. REVLIMID [Suspect]
     Indication: MULTIPLE MYELOMA
     Dosage: 25 MILLIGRAM
     Route: 048
     Dates: start: 20070801, end: 20070101
  9. REVLIMID [Suspect]
     Dosage: 15 MILLIGRAM
     Route: 048
     Dates: start: 20071001, end: 20100101
  10. BENAZEPRIL HYDROCHLORIDE [Concomitant]
     Dosage: 5 MILLIGRAM
     Route: 065
  11. VICODIN [Concomitant]
     Dosage: 5-500MG
     Route: 065
  12. WARFARIN [Concomitant]
     Dosage: 2 MILLIGRAM
     Route: 065
  13. DIGOXIN [Concomitant]
     Dosage: .125 MILLIGRAM
     Route: 065
  14. LEVOTHYROXINE SODIUM [Concomitant]
     Dosage: 112 MICROGRAM
     Route: 065
  15. DIGOXIN [Concomitant]
     Dosage: .125 MILLIGRAM
     Route: 065

REACTIONS (2)
  - FATIGUE [None]
  - DIABETES MELLITUS [None]
